FAERS Safety Report 16917544 (Version 3)
Quarter: 2019Q4

REPORT INFORMATION
  Report Type: Report from Study
  Country: RO (occurrence: RO)
  Receive Date: 20191015
  Receipt Date: 20191024
  Transmission Date: 20200122
  Serious: Yes (Death, Hospitalization, Other)
  Sender: FDA-Public Use
  Company Number: RO-GILEAD-2019-0432932

PATIENT
  Age: 68 Year
  Sex: Female
  Weight: 60 kg

DRUGS (5)
  1. LEDIPASVIR/SOFOSBUVIR [Suspect]
     Active Substance: LEDIPASVIR\SOFOSBUVIR
     Indication: HEPATITIS C
     Dosage: 1 DOSAGE FORM, QD
     Route: 048
     Dates: start: 20190702, end: 20190923
  2. PROPRANOLOL [Concomitant]
     Active Substance: PROPRANOLOL HYDROCHLORIDE
     Indication: OESOPHAGEAL VARICES HAEMORRHAGE
  3. LACTULOSE. [Concomitant]
     Active Substance: LACTULOSE
     Indication: HEPATIC ENCEPHALOPATHY
  4. SPIRONOLACTONA [Concomitant]
     Active Substance: SPIRONOLACTONE
     Indication: ASCITES
  5. LEDIPASVIR/SOFOSBUVIR [Suspect]
     Active Substance: LEDIPASVIR\SOFOSBUVIR
     Indication: HEPATIC CIRRHOSIS

REACTIONS (10)
  - Oesophageal varices haemorrhage [Recovered/Resolved]
  - Diarrhoea [Recovered/Resolved]
  - Shock haemorrhagic [Fatal]
  - Gastroenteritis [Fatal]
  - Abdominal pain [Fatal]
  - Nasopharyngitis [Recovered/Resolved]
  - Vomiting [Fatal]
  - Peritonitis bacterial [Fatal]
  - Ascites [Recovered/Resolved]
  - Alcohol use [Unknown]

NARRATIVE: CASE EVENT DATE: 201909
